FAERS Safety Report 11520500 (Version 1)
Quarter: 2015Q3

REPORT INFORMATION
  Report Type: Spontaneous
  Country: US (occurrence: None)
  Receive Date: 20150917
  Receipt Date: 20150917
  Transmission Date: 20151125
  Serious: No
  Sender: FDA-Public Use
  Company Number: None

PATIENT
  Sex: Female
  Weight: 81.65 kg

DRUGS (6)
  1. COLESTIPOL [Concomitant]
     Active Substance: COLESTIPOL
  2. OMEPRAZOLE. [Suspect]
     Active Substance: OMEPRAZOLE
     Indication: GASTROOESOPHAGEAL REFLUX DISEASE
     Dosage: 1 PILL
     Route: 048
     Dates: end: 201508
  3. VITAMIN [Concomitant]
     Active Substance: VITAMINS
  4. DIPHENOXYLATE-ATROP [Concomitant]
  5. ATENALOL [Concomitant]
  6. LEVOTHYROXINE. [Concomitant]
     Active Substance: LEVOTHYROXINE

REACTIONS (2)
  - Nephrolithiasis [None]
  - Spinal fracture [None]
